FAERS Safety Report 8234438-1 (Version None)
Quarter: 2012Q1

REPORT INFORMATION
  Report Type: 
  Country: None (occurrence: None)
  Receive Date: 20120326
  Receipt Date: 20120322
  Transmission Date: 20120608
  Serious: Yes (Life-Threatening)
  Sender: FDA-Public Use
  Company Number: ZM-ABBOTT-12P-189-0917925-00

PATIENT
  Age: 46 Year
  Sex: Male

DRUGS (5)
  1. LOPINAVIR/RITONAVIR [Suspect]
     Indication: HIV INFECTION
     Route: 048
     Dates: start: 20110429, end: 20120319
  2. ACETAMINOPHEN [Concomitant]
     Indication: MALARIA
     Dates: start: 20120215, end: 20120222
  3. AMOXYL [Concomitant]
     Indication: PRODUCT USED FOR UNKNOWN INDICATION
     Dates: start: 20120215, end: 20120222
  4. RALTEGRAVIR [Concomitant]
     Indication: PRODUCT USED FOR UNKNOWN INDICATION
     Dates: start: 20110429, end: 20120319
  5. COARTEM [Concomitant]
     Indication: PRODUCT USED FOR UNKNOWN INDICATION
     Dates: start: 20120303, end: 20120312

REACTIONS (3)
  - JAUNDICE ACHOLURIC [None]
  - SEPSIS [None]
  - ANAEMIA [None]
